FAERS Safety Report 5673742-8 (Version None)
Quarter: 2008Q1

REPORT INFORMATION
  Report Type: 
  Country: None (occurrence: None)
  Receive Date: 20080319
  Receipt Date: 20080312
  Transmission Date: 20080703
  Serious: Yes (Hospitalization)
  Sender: FDA-Public Use
  Company Number: KR-MERCK-0803KOR00007

PATIENT
  Age: 40 Year
  Sex: Male

DRUGS (4)
  1. CRIXIVAN [Suspect]
     Indication: HIV INFECTION
     Route: 048
  2. LAMIVUDINE [Concomitant]
     Indication: HIV INFECTION
     Route: 048
  3. ZIDOVUDINE [Concomitant]
     Indication: HIV INFECTION
     Route: 048
  4. SULFAMETHOXAZOLE AND TRIMETHOPRIM [Concomitant]
     Indication: PNEUMOCYSTIS JIROVECI PNEUMONIA
     Route: 065

REACTIONS (1)
  - MYCOBACTERIUM AVIUM COMPLEX INFECTION [None]
